FAERS Safety Report 13671406 (Version 1)
Quarter: 2017Q2

REPORT INFORMATION
  Report Type: Spontaneous
  Country: US (occurrence: US)
  Receive Date: 20170620
  Receipt Date: 20170620
  Transmission Date: 20170830
  Serious: No
  Sender: FDA-Public Use
  Company Number: US-ROCHE-1441386

PATIENT
  Sex: Female

DRUGS (2)
  1. XELODA [Suspect]
     Active Substance: CAPECITABINE
     Indication: BREAST CANCER
     Route: 048
     Dates: start: 20120712, end: 201207
  2. XELODA [Suspect]
     Active Substance: CAPECITABINE
     Route: 048
     Dates: end: 201406

REACTIONS (3)
  - Palpitations [Recovered/Resolved]
  - Faeces discoloured [Recovered/Resolved]
  - Dizziness [Recovered/Resolved]
